FAERS Safety Report 5698469-8 (Version None)
Quarter: 2008Q2

REPORT INFORMATION
  Report Type: 
  Country: None (occurrence: None)
  Receive Date: 20080408
  Receipt Date: 20061006
  Transmission Date: 20081010
  Serious: Yes (Other)
  Sender: FDA-Public Use
  Company Number: US-BAYER-US-2005-026853

PATIENT
  Age: 48 Year
  Sex: Female
  Weight: 68 kg

DRUGS (7)
  1. CLIMARA [Suspect]
     Indication: MENOPAUSAL SYMPTOMS
     Route: 062
     Dates: start: 20000101, end: 20040101
  2. ESTRADIOL [Suspect]
     Indication: MENOPAUSAL SYMPTOMS
     Dates: start: 20000101, end: 20040101
  3. OGEN [Suspect]
     Indication: MENOPAUSAL SYMPTOMS
     Dates: start: 19990101, end: 20000101
  4. PROTONIX [Concomitant]
     Indication: GASTROOESOPHAGEAL REFLUX DISEASE
     Dates: start: 20020701, end: 20030101
  5. ALLEGRA [Concomitant]
     Dates: start: 20021101
  6. ZYRTEC [Concomitant]
     Dates: start: 20040101, end: 20060101
  7. LIQUIBID-D [Concomitant]
     Dates: start: 20030101, end: 20030101

REACTIONS (2)
  - BREAST CANCER IN SITU [None]
  - HYPERTENSION [None]
